FAERS Safety Report 4946562-7 (Version None)
Quarter: 2006Q1

REPORT INFORMATION
  Report Type: 
  Country: None (occurrence: None)
  Receive Date: 20060317
  Receipt Date: 20041203
  Transmission Date: 20060701
  Serious: Yes (Other)
  Sender: FDA-Public Use
  Company Number: GB-GLAXOSMITHKLINE-B0360258A

PATIENT
  Sex: Female

DRUGS (4)
  1. PAROXETINE HYDROCHLORIDE [Suspect]
     Route: 065
  2. EFFEXOR [Concomitant]
     Route: 065
     Dates: start: 20021101
  3. HRT [Concomitant]
     Dates: start: 19970101
  4. MST [Concomitant]
     Dosage: 30MG PER DAY
     Route: 065

REACTIONS (5)
  - AGGRESSION [None]
  - ANXIETY [None]
  - COMPLETED SUICIDE [None]
  - DRUG DEPENDENCE [None]
  - DRUG WITHDRAWAL SYNDROME [None]
